FAERS Safety Report 19015841 (Version 1)
Quarter: 2021Q1

REPORT INFORMATION
  Report Type: Report from Study
  Country: CA (occurrence: CA)
  Receive Date: 20210316
  Receipt Date: 20210316
  Transmission Date: 20210420
  Serious: Yes (Hospitalization)
  Sender: FDA-Public Use
  Company Number: PHHY2018CA068293

PATIENT
  Age: 71 Year
  Sex: Female

DRUGS (7)
  1. SANDOSTATIN LAR DEPOT [Suspect]
     Active Substance: OCTREOTIDE ACETATE
  2. CODEINE PHOSPHATE [Suspect]
     Active Substance: CODEINE PHOSPHATE
     Indication: PRODUCT USED FOR UNKNOWN INDICATION
     Dosage: UNK
     Route: 065
  3. SANDOSTATIN LAR DEPOT [Suspect]
     Active Substance: OCTREOTIDE ACETATE
  4. MOXIFLOXACIN. [Suspect]
     Active Substance: MOXIFLOXACIN
     Indication: ARTHRITIS INFECTIVE
     Dosage: 400 MG, QD
     Route: 065
  5. AMOXICILLIN/CLAVULANIC ACID [Concomitant]
     Active Substance: AMOXICILLIN\CLAVULANIC ACID
     Indication: ARTHRITIS INFECTIVE
     Dosage: 1 OT, BID
     Route: 065
  6. AMOXICILLIN/CLAVULANIC ACID [Concomitant]
     Active Substance: AMOXICILLIN\CLAVULANIC ACID
     Indication: KNEE OPERATION
  7. SANDOSTATIN LAR DEPOT [Suspect]
     Active Substance: OCTREOTIDE ACETATE
     Indication: CARCINOID TUMOUR
     Dosage: 30 MG, QMO (EVERY 4 WEEKS)
     Route: 030
     Dates: start: 20180412

REACTIONS (12)
  - Malaise [Unknown]
  - Diarrhoea [Unknown]
  - Cystitis [Unknown]
  - Scar [Recovered/Resolved]
  - Incision site haematoma [Unknown]
  - Abnormal faeces [Unknown]
  - Flushing [Unknown]
  - Wrong technique in product usage process [Unknown]
  - Blood glucose abnormal [Unknown]
  - Anxiety [Unknown]
  - Infrequent bowel movements [Unknown]
  - Hypotension [Unknown]

NARRATIVE: CASE EVENT DATE: 2018
